FAERS Safety Report 21324219 (Version 1)
Quarter: 2022Q3

REPORT INFORMATION
  Report Type: Spontaneous
  Country: US (occurrence: None)
  Receive Date: 20220911
  Receipt Date: 20220911
  Transmission Date: 20221027
  Serious: Yes (Other)
  Sender: FDA-Public Use
  Company Number: None

PATIENT
  Age: 60 Year
  Sex: Female
  Weight: 85.5 kg

DRUGS (3)
  1. CAPSAICIN 0.1 PERCENT [Suspect]
     Active Substance: CAPSAICIN
     Indication: Diabetic neuropathy
     Dosage: OTHER QUANTITY : 1 TEASPOON(S);?FREQUENCY : AS NEEDED;?
     Route: 061
     Dates: start: 20220909, end: 20220909
  2. METFORMIN [Concomitant]
     Active Substance: METFORMIN HYDROCHLORIDE
  3. VITAMINS [Concomitant]
     Active Substance: VITAMINS

REACTIONS (8)
  - Accidental exposure to product [None]
  - Peripheral swelling [None]
  - Erythema [None]
  - Pain [None]
  - Eye irritation [None]
  - Oral discomfort [None]
  - Tongue discomfort [None]
  - Burning sensation [None]

NARRATIVE: CASE EVENT DATE: 20220909
